FAERS Safety Report 12679081 (Version 2)
Quarter: 2016Q4

REPORT INFORMATION
  Report Type: Spontaneous
  Country: US (occurrence: US)
  Receive Date: 20160824
  Receipt Date: 20161004
  Transmission Date: 20170207
  Serious: No
  Sender: FDA-Public Use
  Company Number: US-ASTRAZENECA-2016SE85875

PATIENT
  Sex: Female

DRUGS (1)
  1. PULMICORT FLEXHALER [Suspect]
     Active Substance: BUDESONIDE
     Dosage: 180 MCG TWO PUFFS TWICE A DAY
     Route: 055

REACTIONS (4)
  - Device malfunction [Unknown]
  - Asthma [Unknown]
  - Drug dose omission [Unknown]
  - Device failure [Unknown]
